FAERS Safety Report 18994590 (Version 2)
Quarter: 2021Q2

REPORT INFORMATION
  Report Type: Spontaneous
  Country: DE (occurrence: DE)
  Receive Date: 20210311
  Receipt Date: 20210404
  Transmission Date: 20210717
  Serious: Yes (Hospitalization, Other)
  Sender: FDA-Public Use
  Company Number: DE-JNJFOC-20210315823

PATIENT
  Age: 53 Year
  Sex: Male
  Weight: 103 kg

DRUGS (2)
  1. RIVAROXABAN [Suspect]
     Active Substance: RIVAROXABAN
     Indication: PRODUCT USED FOR UNKNOWN INDICATION
     Dosage: 2X15 MG ? 1?0?1, ANWENDUNG 19.02.2021 ABENDS ? 22.02.2021 MORGENS
     Route: 048
     Dates: start: 20210219, end: 20210222
  2. CLEXANE [Concomitant]
     Active Substance: ENOXAPARIN SODIUM
     Indication: DEEP VEIN THROMBOSIS
     Dosage: APPLICATION AT NOON
     Dates: start: 20210219

REACTIONS (6)
  - Impaired work ability [Unknown]
  - Haematoma muscle [Not Recovered/Not Resolved]
  - Compartment syndrome [Unknown]
  - Tissue injury [Recovered/Resolved with Sequelae]
  - Pain [Unknown]
  - Muscle haemorrhage [Not Recovered/Not Resolved]

NARRATIVE: CASE EVENT DATE: 20210220
